FAERS Safety Report 7595301-2 (Version None)
Quarter: 2011Q3

REPORT INFORMATION
  Report Type: 
  Country: None (occurrence: None)
  Receive Date: 20110707
  Receipt Date: 20110628
  Transmission Date: 20111222
  Serious: Yes (Other)
  Sender: FDA-Public Use
  Company Number: FR-KINGPHARMUSA00001-K201001543

PATIENT
  Age: 50 Year
  Sex: Female

DRUGS (2)
  1. ALTACE [Suspect]
     Dosage: UNK
     Route: 048
     Dates: start: 20100901
  2. BUDESONIDE W/FORMOTEROL FUMARATE [Concomitant]
     Dosage: 160 MG, BID, QAM

REACTIONS (9)
  - RESPIRATORY DISTRESS [None]
  - BRONCHOSPASM [None]
  - ASTHMA [None]
  - DYSPNOEA [None]
  - COUGH [None]
  - BRONCHIAL OBSTRUCTION [None]
  - GENERAL PHYSICAL HEALTH DETERIORATION [None]
  - OROPHARYNGEAL PAIN [None]
  - PULMONARY FUNCTION TEST DECREASED [None]
